FAERS Safety Report 10358344 (Version 2)
Quarter: 2014Q3

REPORT INFORMATION
  Report Type: Spontaneous
  Country: US (occurrence: US)
  Receive Date: 20140801
  Receipt Date: 20140801
  Transmission Date: 20150326
  Serious: Yes (Death, Hospitalization)
  Sender: FDA-Public Use
  Company Number: US-LUNDBECK-DKLU1084762

PATIENT
  Age: 55 Year
  Sex: Male

DRUGS (1)
  1. SABRIL [Suspect]
     Active Substance: VIGABATRIN
     Indication: COMPLEX PARTIAL SEIZURES
     Route: 048
     Dates: start: 20101216

REACTIONS (6)
  - Fungaemia [Fatal]
  - Sepsis [Fatal]
  - Acute myocardial infarction [Fatal]
  - Multi-organ failure [Fatal]
  - Convulsion [Fatal]
  - Pneumonia necrotising [Fatal]

NARRATIVE: CASE EVENT DATE: 20120823
